FAERS Safety Report 7375857-5 (Version None)
Quarter: 2011Q1

REPORT INFORMATION
  Report Type: 
  Country: None (occurrence: None)
  Receive Date: 20110325
  Receipt Date: 20110311
  Transmission Date: 20110831
  Serious: Yes (Hospitalization)
  Sender: FDA-Public Use
  Company Number: A0918983A

PATIENT
  Sex: Female
  Weight: 53.2 kg

DRUGS (9)
  1. TYLEX [Concomitant]
     Dosage: 30MG FOUR TIMES PER DAY
     Dates: start: 20110309, end: 20110315
  2. LAPATINIB [Suspect]
     Dosage: 1250MG PER DAY
     Route: 048
  3. PROPRANOLOL [Concomitant]
     Dosage: 40MG PER DAY
     Dates: start: 20091201
  4. TYLEX [Concomitant]
     Dosage: 30MG THREE TIMES PER DAY
     Dates: start: 20110103, end: 20110308
  5. OMEPRAZOLE [Concomitant]
     Dosage: 20MG PER DAY
     Dates: start: 20110103
  6. AREDIA [Concomitant]
     Dosage: 90MG MONTHLY
     Dates: start: 20110104
  7. CAPECITABINE [Suspect]
     Dosage: 2000MGM2 TWICE PER DAY
     Route: 048
  8. PARACETAMOL [Concomitant]
     Dosage: 750MG AS REQUIRED
     Dates: start: 20110103, end: 20110308
  9. DIPIRONE [Concomitant]
     Dosage: 500MG AS REQUIRED
     Dates: start: 20110103

REACTIONS (1)
  - THROMBOSIS [None]
